FAERS Safety Report 21220935 (Version 1)
Quarter: 2022Q3

REPORT INFORMATION
  Report Type: Spontaneous
  Country: GB (occurrence: GB)
  Receive Date: 20220817
  Receipt Date: 20220817
  Transmission Date: 20221027
  Serious: Yes (Life-Threatening, Other)
  Sender: FDA-Public Use
  Company Number: GB-MHRA-MED-202207270929391170-DHFNC

PATIENT
  Age: 19 Year
  Sex: Female
  Weight: 48 kg

DRUGS (4)
  1. SERTRALINE [Suspect]
     Active Substance: SERTRALINE HYDROCHLORIDE
     Indication: Product used for unknown indication
     Dosage: 50 MILLIGRAM, QD, TABLET
     Route: 065
     Dates: start: 20220420, end: 20220620
  2. MEFENAMIC ACID [Concomitant]
     Active Substance: MEFENAMIC ACID
     Indication: Dysmenorrhoea
     Dosage: UNK
     Route: 065
     Dates: start: 20220527
  3. PROPRANOLOL [Concomitant]
     Active Substance: PROPRANOLOL HYDROCHLORIDE
     Indication: Anxiety
     Dosage: UNK
     Route: 065
     Dates: start: 20201009
  4. RIGEVIDON [Concomitant]
     Indication: Polycystic ovaries
     Dosage: UNK
     Route: 065
     Dates: start: 20200824

REACTIONS (4)
  - Thrombocytopenia [Recovering/Resolving]
  - Increased tendency to bruise [Unknown]
  - Heavy menstrual bleeding [Unknown]
  - Viral infection [Unknown]

NARRATIVE: CASE EVENT DATE: 20220608
